FAERS Safety Report 25575104 (Version 5)
Quarter: 2025Q3

REPORT INFORMATION
  Report Type: Spontaneous
  Country: US (occurrence: US)
  Receive Date: 20250718
  Receipt Date: 20250812
  Transmission Date: 20251020
  Serious: No
  Sender: SANOFI AVENTIS
  Company Number: US-SA-2025SA201202

PATIENT
  Age: 45 Year
  Sex: Male

DRUGS (5)
  1. TZIELD [Suspect]
     Active Substance: TEPLIZUMAB-MZWV
     Indication: Diabetes prophylaxis
     Route: 041
     Dates: start: 20250710, end: 20250710
  2. TZIELD [Suspect]
     Active Substance: TEPLIZUMAB-MZWV
     Route: 041
     Dates: start: 20250711, end: 20250711
  3. TZIELD [Suspect]
     Active Substance: TEPLIZUMAB-MZWV
     Route: 041
     Dates: start: 20250712, end: 20250712
  4. TZIELD [Suspect]
     Active Substance: TEPLIZUMAB-MZWV
     Route: 041
     Dates: start: 20250713, end: 20250713
  5. TZIELD [Suspect]
     Active Substance: TEPLIZUMAB-MZWV
     Route: 041
     Dates: start: 20250714, end: 20250723

REACTIONS (6)
  - Skin swelling [Recovered/Resolved]
  - Erythema [Recovered/Resolved]
  - Infusion site erythema [Recovering/Resolving]
  - Rash pruritic [Recovered/Resolved]
  - Nausea [Unknown]
  - Vomiting [Unknown]

NARRATIVE: CASE EVENT DATE: 20250711
